FAERS Safety Report 14568245 (Version 1)
Quarter: 2018Q1

REPORT INFORMATION
  Report Type: Spontaneous
  Country: US (occurrence: US)
  Receive Date: 20180223
  Receipt Date: 20180223
  Transmission Date: 20180509
  Serious: Yes (Other)
  Sender: FDA-Public Use
  Company Number: US-INDIVIOR LIMITED-INDV-109174-2018

PATIENT
  Sex: Female

DRUGS (4)
  1. SUBUTEX [Suspect]
     Active Substance: BUPRENORPHINE HYDROCHLORIDE
     Dosage: 24 MG, QD (PATIENT WOULD TAKE 16MG AND USE THE OTHER 8MG TO INJECT)
     Route: 051
  2. SUBOXONE [Suspect]
     Active Substance: BUPRENORPHINE HYDROCHLORIDE\NALOXONE HYDROCHLORIDE
     Indication: PRODUCT USED FOR UNKNOWN INDICATION
     Dosage: 24 MG, QD (PATIENT WOULD TAKE 16MG AND USE THE OTHER 8MG TO INJECT)
     Route: 065
  3. SUBOXONE [Suspect]
     Active Substance: BUPRENORPHINE HYDROCHLORIDE\NALOXONE HYDROCHLORIDE
     Dosage: 24 MG, QD (PATIENT WOULD TAKE 16MG AND USE THE OTHER 8MG TO INJECT)
     Route: 051
  4. SUBUTEX [Suspect]
     Active Substance: BUPRENORPHINE HYDROCHLORIDE
     Indication: PRODUCT USED FOR UNKNOWN INDICATION
     Dosage: 24 MG, QD (PATIENT WOULD TAKE 16MG AND USE THE OTHER 8MG TO INJECT)
     Route: 065

REACTIONS (4)
  - Intentional self-injury [Unknown]
  - Intentional product use issue [Unknown]
  - Malaise [Unknown]
  - Pain [Unknown]
